FAERS Safety Report 5534080-7 (Version None)
Quarter: 2007Q4

REPORT INFORMATION
  Report Type: 
  Country: None (occurrence: None)
  Receive Date: 20071205
  Receipt Date: 20071108
  Transmission Date: 20080405
  Serious: No
  Sender: FDA-Public Use
  Company Number: US-JNJFOC-20071103709

PATIENT
  Age: 45 Year
  Sex: Female

DRUGS (2)
  1. INVEGA [Suspect]
     Indication: DRUG USE FOR UNKNOWN INDICATION
     Route: 048
  2. VALIUM [Concomitant]

REACTIONS (1)
  - BLISTER [None]
